FAERS Safety Report 14425808 (Version 1)
Quarter: 2018Q1

REPORT INFORMATION
  Report Type: Spontaneous
  Country: AU (occurrence: AU)
  Receive Date: 20180123
  Receipt Date: 20180123
  Transmission Date: 20180509
  Serious: Yes (Disabling)
  Sender: FDA-Public Use
  Company Number: ALCN2016AU005408

PATIENT
  Age: 58 Year
  Sex: Female

DRUGS (4)
  1. TRIESENCE [Suspect]
     Active Substance: TRIAMCINOLONE ACETONIDE
     Indication: MACULAR OEDEMA
     Dosage: UNK
     Route: 031
     Dates: start: 20160102
  2. TRIESENCE [Suspect]
     Active Substance: TRIAMCINOLONE ACETONIDE
     Indication: ANEURYSM
  3. AVASTIN [Suspect]
     Active Substance: BEVACIZUMAB
     Indication: MACULAR OEDEMA
     Route: 031
  4. AVASTIN [Suspect]
     Active Substance: BEVACIZUMAB
     Indication: ANEURYSM

REACTIONS (3)
  - Drug ineffective [Unknown]
  - Visual acuity reduced [Recovering/Resolving]
  - Chorioretinitis [Recovering/Resolving]

NARRATIVE: CASE EVENT DATE: 20160201
